FAERS Safety Report 4550960-3 (Version None)
Quarter: 2004Q4

REPORT INFORMATION
  Report Type: 
  Country: None (occurrence: None)
  Receive Date: 20041217
  Receipt Date: 20040809
  Transmission Date: 20050328
  Serious: No
  Sender: FDA-Public Use
  Company Number: 2004-BP-06700BP

PATIENT
  Age: 82 Year
  Sex: Female

DRUGS (17)
  1. SPIRIVA [Suspect]
     Indication: CHRONIC OBSTRUCTIVE AIRWAYS DISEASE
     Dosage: 18 MCG (18 MCG), IH
     Route: 055
     Dates: start: 20040701
  2. ALLEGRA [Concomitant]
  3. MICRO-K (POTASSIUM CHLORIDE) [Concomitant]
  4. ACIPHEX [Concomitant]
  5. BACTRIM [Concomitant]
  6. AZMACORT [Concomitant]
  7. ATROVENT [Concomitant]
  8. ALUPENT [Concomitant]
  9. PREDNISONE [Concomitant]
  10. LASIX (LASIX) [Concomitant]
  11. ALTACE [Concomitant]
  12. NASACORT [Concomitant]
  13. CALCIUM (CALCIUM) [Concomitant]
  14. THEOPHYLLINE [Concomitant]
  15. LANOXIN [Concomitant]
  16. ORGANDON [Concomitant]
  17. ALBUTEROL [Concomitant]

REACTIONS (1)
  - VISION BLURRED [None]
